FAERS Safety Report 23045480 (Version 3)
Quarter: 2024Q1

REPORT INFORMATION
  Report Type: Spontaneous
  Country: US (occurrence: US)
  Receive Date: 20231009
  Receipt Date: 20240308
  Transmission Date: 20240409
  Serious: Yes (Hospitalization, Other)
  Sender: FDA-Public Use
  Company Number: US-BIOVITRUM-2023-US-015581

PATIENT
  Age: 0 Year
  Sex: Male
  Weight: 10.25 kg

DRUGS (9)
  1. SYNAGIS [Suspect]
     Active Substance: PALIVIZUMAB
     Indication: Antiviral prophylaxis
     Dosage: 100MG/1ML AND 50MG/0.5ML?15 MG/KG, EVERY 28 DAYS
     Route: 030
  2. SYNAGIS [Suspect]
     Active Substance: PALIVIZUMAB
     Indication: Premature baby
  3. ALBUTEROL SULFATE [Concomitant]
     Active Substance: ALBUTEROL SULFATE
     Indication: Product used for unknown indication
  4. FLUTICASONE PROPIONATE HF [Concomitant]
     Indication: Product used for unknown indication
  5. IPRATROPIUM BROMIDE [Concomitant]
     Active Substance: IPRATROPIUM BROMIDE\IPRATROPIUM BROMIDE ANHYDROUS
     Indication: Product used for unknown indication
  6. PREDNISOLONE [Concomitant]
     Active Substance: PREDNISOLONE
     Indication: Product used for unknown indication
  7. TETRACAINE HYDROCHLORIDE [Concomitant]
     Active Substance: TETRACAINE HYDROCHLORIDE
     Indication: Product used for unknown indication
  8. AMOXICILLIN [Concomitant]
     Active Substance: AMOXICILLIN
     Indication: Product used for unknown indication
  9. CYCLOMYDRIL [Concomitant]
     Active Substance: CYCLOPENTOLATE HYDROCHLORIDE\PHENYLEPHRINE HYDROCHLORIDE
     Indication: Product used for unknown indication

REACTIONS (5)
  - COVID-19 [Unknown]
  - Respiratory syncytial virus infection [Unknown]
  - Influenza [Unknown]
  - Hypoxia [Unknown]
  - Ear infection [Unknown]

NARRATIVE: CASE EVENT DATE: 20240201
